FAERS Safety Report 21500835 (Version 2)
Quarter: 2023Q2

REPORT INFORMATION
  Report Type: Report from Study
  Country: US (occurrence: US)
  Receive Date: 20221025
  Receipt Date: 20230425
  Transmission Date: 20230721
  Serious: No
  Sender: FDA-Public Use
  Company Number: US-KYOWAKIRIN-2022BKK016427

PATIENT

DRUGS (1)
  1. BUROSUMAB [Suspect]
     Active Substance: BUROSUMAB
     Indication: Hereditary hypophosphataemic rickets
     Dosage: 40 MG, 1X/2 WEEKS
     Route: 065
     Dates: start: 20200724

REACTIONS (4)
  - Impaired healing [Unknown]
  - Wheelchair user [Unknown]
  - Treatment delayed [Unknown]
  - Limb operation [Unknown]

NARRATIVE: CASE EVENT DATE: 20220801
